FAERS Safety Report 4646302-5 (Version None)
Quarter: 2005Q2

REPORT INFORMATION
  Report Type: 
  Country: None (occurrence: None)
  Receive Date: 20050427
  Receipt Date: 20050412
  Transmission Date: 20051028
  Serious: Yes (Hospitalization)
  Sender: FDA-Public Use
  Company Number: US-MERCK-0504USA01824

PATIENT
  Age: 83 Year
  Sex: Female
  Weight: 46 kg

DRUGS (4)
  1. VIOXX [Suspect]
     Route: 048
  2. ORIGINAL FORMULA SENSODYNE-SC [Suspect]
     Route: 065
  3. CALCIUM (UNSPECIFIED) [Concomitant]
     Route: 065
  4. VITAMINS (UNSPECIFIED) [Concomitant]
     Route: 065

REACTIONS (3)
  - AMNESIA [None]
  - CEREBROVASCULAR ACCIDENT [None]
  - HYPERTENSION [None]
